FAERS Safety Report 23136837 (Version 1)
Quarter: 2023Q4

REPORT INFORMATION
  Report Type: Spontaneous
  Country: AR (occurrence: AR)
  Receive Date: 20231102
  Receipt Date: 20231102
  Transmission Date: 20240109
  Serious: Yes (Other)
  Sender: FDA-Public Use
  Company Number: AR-002147023-NVSC2023AR231517

PATIENT
  Sex: Female

DRUGS (1)
  1. HYRIMOZ [Suspect]
     Active Substance: ADALIMUMAB-ADAZ
     Indication: Rheumatoid arthritis
     Dosage: 40 MG, BIW (ONCE EVERY TWO WEEKS)
     Route: 058
     Dates: start: 20230107, end: 202308

REACTIONS (3)
  - Rheumatoid arthritis [Unknown]
  - Arthralgia [Unknown]
  - Psoriasis [Unknown]
